FAERS Safety Report 20339105 (Version 4)
Quarter: 2022Q2

REPORT INFORMATION
  Report Type: Spontaneous
  Country: US (occurrence: US)
  Receive Date: 20220117
  Receipt Date: 20220502
  Transmission Date: 20220721
  Serious: No
  Sender: FDA-Public Use
  Company Number: US-BIOGEN-2019BI00757854

PATIENT
  Sex: Female

DRUGS (4)
  1. TECFIDERA [Suspect]
     Active Substance: DIMETHYL FUMARATE
     Indication: Multiple sclerosis
     Dosage: MAINTANCE DOSE
     Route: 065
     Dates: start: 20170616
  2. TECFIDERA [Suspect]
     Active Substance: DIMETHYL FUMARATE
     Dosage: MAINTANCE DOSE
     Route: 065
     Dates: start: 201912
  3. TECFIDERA [Suspect]
     Active Substance: DIMETHYL FUMARATE
     Route: 048
     Dates: start: 201806
  4. TECFIDERA [Suspect]
     Active Substance: DIMETHYL FUMARATE
     Route: 048
     Dates: start: 201711

REACTIONS (17)
  - Product dose omission in error [Unknown]
  - Alopecia [Not Recovered/Not Resolved]
  - Dry skin [Not Recovered/Not Resolved]
  - Skin discolouration [Not Recovered/Not Resolved]
  - Muscle spasticity [Not Recovered/Not Resolved]
  - Psoriasis [Not Recovered/Not Resolved]
  - Pain in extremity [Not Recovered/Not Resolved]
  - Hypoaesthesia [Unknown]
  - Stress [Unknown]
  - Anxiety [Unknown]
  - Skin exfoliation [Unknown]
  - Skin fissures [Unknown]
  - Peroneal nerve palsy [Unknown]
  - Migraine [Unknown]
  - Vision blurred [Unknown]
  - Miliaria [Unknown]
  - Flushing [Unknown]

NARRATIVE: CASE EVENT DATE: 20170101
